FAERS Safety Report 4464549-8 (Version None)
Quarter: 2004Q3

REPORT INFORMATION
  Report Type: 
  Country: None (occurrence: None)
  Receive Date: 20040929
  Receipt Date: 20040914
  Transmission Date: 20050211
  Serious: Yes (Hospitalization)
  Sender: FDA-Public Use
  Company Number: 204750

PATIENT
  Age: 54 Year
  Sex: Female
  Weight: 67.1324 kg

DRUGS (4)
  1. AVONEX [Suspect]
     Indication: MULTIPLE SCLEROSIS
     Dosage: 30 MCG QW IM
     Route: 030
     Dates: start: 19991101
  2. PROZAC [Concomitant]
  3. DETROL [Concomitant]
  4. OXYBUTYNIN [Concomitant]

REACTIONS (12)
  - BLADDER DISORDER [None]
  - CATHETER RELATED COMPLICATION [None]
  - CONDITION AGGRAVATED [None]
  - ECONOMIC PROBLEM [None]
  - HAEMATURIA [None]
  - MOBILITY DECREASED [None]
  - MULTIPLE SCLEROSIS [None]
  - PERINEAL PAIN [None]
  - PYREXIA [None]
  - STRESS SYMPTOMS [None]
  - URINARY TRACT INFECTION [None]
  - UTERINE CYST [None]
